FAERS Safety Report 7222950-3 (Version None)
Quarter: 2011Q1

REPORT INFORMATION
  Report Type: 
  Country: None (occurrence: None)
  Receive Date: 20110112
  Receipt Date: 20101223
  Transmission Date: 20110831
  Serious: No
  Sender: FDA-Public Use
  Company Number: US-B.I. PHARMACEUTICALS,INC./RIDGEFIELD-2010-BP-15402BP

PATIENT
  Sex: Female

DRUGS (8)
  1. PACERONE [Concomitant]
     Indication: ATRIAL FIBRILLATION
  2. ENABLEX [Concomitant]
     Indication: INCONTINENCE
  3. BENICAR [Concomitant]
     Indication: HYPERTENSION
  4. PRADAXA [Suspect]
     Indication: ATRIAL FIBRILLATION
     Dosage: 300 MG
     Route: 048
     Dates: start: 20101201, end: 20101201
  5. ASPIRIN [Concomitant]
     Indication: PROPHYLAXIS
     Dates: start: 20101201
  6. CYMBALTA [Concomitant]
     Indication: DEPRESSION
  7. SUPPLEMENTS [Concomitant]
     Indication: PROPHYLAXIS
  8. MULTIVITAMIN [Concomitant]
     Indication: PROPHYLAXIS

REACTIONS (2)
  - HAEMATOCHEZIA [None]
  - FAECES DISCOLOURED [None]
